FAERS Safety Report 6395108-8 (Version None)
Quarter: 2009Q4

REPORT INFORMATION
  Report Type: 
  Country: None (occurrence: None)
  Receive Date: 20091009
  Receipt Date: 20090928
  Transmission Date: 20100525
  Serious: No
  Sender: FDA-Public Use
  Company Number: B0596047A

PATIENT

DRUGS (1)
  1. RELENZA [Suspect]
     Indication: DRUG USE FOR UNKNOWN INDICATION
     Dosage: 15MG PER DAY
     Route: 055
     Dates: start: 20090928

REACTIONS (1)
  - OVERDOSE [None]
